FAERS Safety Report 12429898 (Version 1)
Quarter: 2016Q2

REPORT INFORMATION
  Report Type: Spontaneous
  Country: US (occurrence: US)
  Receive Date: 20160602
  Receipt Date: 20160602
  Transmission Date: 20160815
  Serious: No
  Sender: FDA-Public Use
  Company Number: US-KADMON PHARMACEUTICALS, LLC-KAD201504-000817

PATIENT
  Age: 59 Year
  Sex: Female

DRUGS (1)
  1. RIBASPHERE [Suspect]
     Active Substance: RIBAVIRIN
     Indication: CHRONIC HEPATITIS C
     Route: 048

REACTIONS (5)
  - Nausea [Unknown]
  - Abnormal dreams [Unknown]
  - Fatigue [Unknown]
  - Influenza like illness [Unknown]
  - Vomiting [Unknown]
